FAERS Safety Report 8050145-2 (Version None)
Quarter: 2012Q1

REPORT INFORMATION
  Report Type: 
  Country: None (occurrence: None)
  Receive Date: 20120117
  Receipt Date: 20120111
  Transmission Date: 20120608
  Serious: Yes (Hospitalization, Other)
  Sender: FDA-Public Use
  Company Number: US-MERCK-1110USA00447

PATIENT
  Age: 69 Year
  Sex: Male
  Weight: 56 kg

DRUGS (3)
  1. FOSAMAX [Suspect]
     Indication: OSTEOPOROSIS
     Route: 048
     Dates: start: 19970101, end: 20090101
  2. ASPIRIN [Concomitant]
     Indication: PROPHYLAXIS
     Route: 065
     Dates: start: 20030101
  3. GERITOL COMPLETE [Concomitant]
     Route: 065
     Dates: start: 20030101

REACTIONS (37)
  - LOBAR PNEUMONIA [None]
  - OSTEOPOROSIS [None]
  - CONSTIPATION [None]
  - MUSCLE ATROPHY [None]
  - ECCHYMOSIS [None]
  - FEMUR FRACTURE [None]
  - HIP FRACTURE [None]
  - STERNAL FRACTURE [None]
  - ASTHENIA [None]
  - NEPHROLITHIASIS [None]
  - IMPAIRED HEALING [None]
  - CHRONIC OBSTRUCTIVE PULMONARY DISEASE [None]
  - HAND DEFORMITY [None]
  - SKIN ATROPHY [None]
  - SCOLIOSIS [None]
  - PULMONARY FIBROSIS [None]
  - ADVERSE EVENT [None]
  - PLEURAL EFFUSION [None]
  - SPINAL COMPRESSION FRACTURE [None]
  - DRUG INEFFECTIVE [None]
  - PULMONARY GRANULOMA [None]
  - PULMONARY CAVITATION [None]
  - ASTHMA [None]
  - BRONCHITIS [None]
  - CHEST PAIN [None]
  - EMPHYSEMA [None]
  - RIB FRACTURE [None]
  - PNEUMONIA [None]
  - MULTIPLE FRACTURES [None]
  - FATIGUE [None]
  - RHINORRHOEA [None]
  - DECREASED APPETITE [None]
  - CARDIAC DISORDER [None]
  - TOOTH DISORDER [None]
  - TACHYCARDIA [None]
  - OSTEOPENIA [None]
  - LIMB DEFORMITY [None]
